FAERS Safety Report 20591365 (Version 1)
Quarter: 2022Q1

REPORT INFORMATION
  Report Type: Spontaneous
  Country: US (occurrence: US)
  Receive Date: 20220314
  Receipt Date: 20220314
  Transmission Date: 20220424
  Serious: Yes (Other)
  Sender: FDA-Public Use
  Company Number: US-JNJFOC-20220314228

PATIENT
  Age: 72 Year
  Sex: Male
  Weight: 70.370 kg

DRUGS (1)
  1. BALVERSA [Suspect]
     Active Substance: ERDAFITINIB
     Indication: Neoplasm
     Route: 065
     Dates: start: 202108, end: 202202

REACTIONS (9)
  - Calciphylaxis [Unknown]
  - Hair colour changes [Unknown]
  - Visual impairment [Unknown]
  - Ageusia [Unknown]
  - Adverse drug reaction [Unknown]
  - Stomatitis [Unknown]
  - Dry mouth [Unknown]
  - Onycholysis [Unknown]
  - Dry skin [Unknown]
